FAERS Safety Report 5872945-7 (Version None)
Quarter: 2008Q3

REPORT INFORMATION
  Report Type: 
  Country: None (occurrence: None)
  Receive Date: 20080905
  Receipt Date: 20080826
  Transmission Date: 20090109
  Serious: Yes (Other)
  Sender: FDA-Public Use
  Company Number: US-PFIZER INC-2008071477

PATIENT
  Sex: Male

DRUGS (3)
  1. DETROL LA [Suspect]
  2. OMEPRAZOLE [Interacting]
     Indication: GASTROOESOPHAGEAL REFLUX DISEASE
     Dosage: DAILY DOSE:20MG
  3. VITAMIN TAB [Concomitant]

REACTIONS (5)
  - BLADDER CANCER [None]
  - DRUG INEFFECTIVE [None]
  - DRUG INTERACTION [None]
  - GASTROOESOPHAGEAL REFLUX DISEASE [None]
  - UNEVALUABLE EVENT [None]
